FAERS Safety Report 6473986-1 (Version None)
Quarter: 2009Q4

REPORT INFORMATION
  Report Type: 
  Country: None (occurrence: None)
  Receive Date: 20091204
  Receipt Date: 20091202
  Transmission Date: 20100525
  Serious: Yes (Life-Threatening)
  Sender: FDA-Public Use
  Company Number: DE-ASTRAZENECA-2009SE29850

PATIENT
  Age: 67 Year
  Sex: Male
  Weight: 85 kg

DRUGS (1)
  1. CRESTOR [Suspect]
     Indication: HYPERLIPIDAEMIA
     Route: 048
     Dates: start: 20091102, end: 20091104

REACTIONS (2)
  - CIRCULATORY COLLAPSE [None]
  - MUSCLE SPASMS [None]
